FAERS Safety Report 5068970-9 (Version None)
Quarter: 2006Q3

REPORT INFORMATION
  Report Type: 
  Country: None (occurrence: None)
  Receive Date: 20060801
  Receipt Date: 20060801
  Transmission Date: 20061208
  Serious: Yes (Hospitalization)
  Sender: FDA-Public Use
  Company Number: None

PATIENT
  Age: 56 Year
  Sex: Male
  Weight: 73 kg

DRUGS (13)
  1. ENOXAPARIN SODIUM [Suspect]
     Indication: THROMBOSIS PROPHYLAXIS
     Dosage: 40 MG DAILY SQ
     Route: 058
     Dates: start: 20060515, end: 20060519
  2. ACETAMINOPHEN [Concomitant]
  3. ALBUTEROL SPIROS [Concomitant]
  4. ALBUTEROL/IPRATROPIUM INHL [Concomitant]
  5. CILASTATIN/IMIPENEM [Concomitant]
  6. DOXYCYCLINE HCL [Concomitant]
  7. IPRATROPIUM BROMIDE [Concomitant]
  8. METHYLPREDNISOLONE [Concomitant]
  9. METRONIDAZOLE [Concomitant]
  10. MORPHINE [Concomitant]
  11. ONDANSETRON HCL [Concomitant]
  12. OXYCODONE HCL [Concomitant]
  13. POTASSIUM CHLORIDE [Concomitant]

REACTIONS (3)
  - ANTIBODY TEST POSITIVE [None]
  - HEPARIN-INDUCED THROMBOCYTOPENIA TEST [None]
  - PLATELET COUNT DECREASED [None]
